FAERS Safety Report 24882169 (Version 1)
Quarter: 2025Q1

REPORT INFORMATION
  Report Type: Spontaneous
  Country: US (occurrence: US)
  Receive Date: 20250124
  Receipt Date: 20250124
  Transmission Date: 20250409
  Serious: No
  Sender: AMGEN
  Company Number: US-AMGEN-USASP2025008807

PATIENT

DRUGS (1)
  1. PROLIA [Suspect]
     Active Substance: DENOSUMAB
     Indication: Osteoporosis
     Route: 065

REACTIONS (5)
  - Gait disturbance [Unknown]
  - Musculoskeletal disorder [Unknown]
  - Pain [Unknown]
  - Dyspepsia [Unknown]
  - Sleep disorder due to general medical condition, insomnia type [Unknown]
